FAERS Safety Report 5193960-5 (Version None)
Quarter: 2006Q4

REPORT INFORMATION
  Report Type: 
  Country: None (occurrence: None)
  Receive Date: 20061222
  Receipt Date: 20061209
  Transmission Date: 20070319
  Serious: Yes (Hospitalization)
  Sender: FDA-Public Use
  Company Number: 2006S1011499

PATIENT
  Age: 17 Year
  Sex: Male

DRUGS (2)
  1. FENTANYL TRANSDERMAL SYSTEM [Suspect]
     Dosage: 100 UG/HR;  ;TDER
     Route: 062
  2. HYPNOTICS AND SEDATIVES [Suspect]

REACTIONS (3)
  - COMA [None]
  - DRUG ABUSER [None]
  - LOSS OF CONSCIOUSNESS [None]
